FAERS Safety Report 13421501 (Version 1)
Quarter: 2017Q2

REPORT INFORMATION
  Report Type: Spontaneous
  Country: CL (occurrence: CL)
  Receive Date: 20170410
  Receipt Date: 20170410
  Transmission Date: 20170830
  Serious: Yes (Other)
  Sender: FDA-Public Use
  Company Number: CL-009507513-1704CHL002522

PATIENT
  Age: 23 Year
  Sex: Female

DRUGS (1)
  1. NUVARING [Suspect]
     Active Substance: ETHINYL ESTRADIOL\ETONOGESTREL
     Indication: CHEMICAL CONTRACEPTION
     Dosage: UNK UNK, MONTHLY
     Route: 067

REACTIONS (1)
  - Angioedema [Recovered/Resolved]
